FAERS Safety Report 20904629 (Version 1)
Quarter: 2022Q2

REPORT INFORMATION
  Report Type: Spontaneous
  Country: BE (occurrence: BE)
  Receive Date: 20220602
  Receipt Date: 20220602
  Transmission Date: 20220720
  Serious: Yes (Hospitalization)
  Sender: FDA-Public Use
  Company Number: BE-BRISTOL-MYERS SQUIBB COMPANY-2022-049351

PATIENT
  Age: 70 Year
  Sex: Male

DRUGS (2)
  1. OPDIVO [Suspect]
     Active Substance: NIVOLUMAB
     Indication: Uveal melanoma
     Route: 065
     Dates: start: 201709
  2. YERVOY [Suspect]
     Active Substance: IPILIMUMAB
     Indication: Uveal melanoma
     Route: 065
     Dates: start: 201709

REACTIONS (5)
  - Fatigue [Unknown]
  - Dysphagia [Unknown]
  - Dry mouth [Unknown]
  - Dyspnoea [Unknown]
  - Anxiety [Unknown]
